FAERS Safety Report 10208351 (Version 4)
Quarter: 2014Q3

REPORT INFORMATION
  Report Type: Report from Study
  Country: US (occurrence: US)
  Receive Date: 20140530
  Receipt Date: 20140909
  Transmission Date: 20150326
  Serious: Yes (Other)
  Sender: FDA-Public Use
  Company Number: US-SA-2014SA052681

PATIENT
  Age: 61 Year
  Sex: Male
  Weight: 74.8 kg

DRUGS (9)
  1. PRAVASTATIN [Concomitant]
     Active Substance: PRAVASTATIN\PRAVASTATIN SODIUM
  2. TYLENOL [Concomitant]
     Active Substance: ACETAMINOPHEN
  3. TECFIDERA [Suspect]
     Active Substance: DIMETHYL FUMARATE
     Route: 065
     Dates: end: 2013
  4. ANALGESICS [Concomitant]
     Active Substance: UNSPECIFIED INGREDIENT
  5. AMPYRA [Suspect]
     Active Substance: DALFAMPRIDINE
     Indication: GAIT DISTURBANCE
     Route: 048
     Dates: start: 2010
  6. ECOTRIN [Concomitant]
     Active Substance: ASPIRIN
  7. ADVIL [Concomitant]
     Active Substance: IBUPROFEN
  8. AUBAGIO [Suspect]
     Active Substance: TERIFLUNOMIDE
     Indication: MULTIPLE SCLEROSIS
     Route: 048
     Dates: start: 20131201, end: 20140501
  9. ATENOLOL. [Concomitant]
     Active Substance: ATENOLOL

REACTIONS (10)
  - Asthenia [Unknown]
  - Nausea [Unknown]
  - Asthenia [Recovering/Resolving]
  - Gait disturbance [Recovering/Resolving]
  - Physical disability [Unknown]
  - Rash [Unknown]
  - Pruritus [Unknown]
  - Vomiting [Unknown]
  - Musculoskeletal stiffness [Unknown]
  - Diarrhoea [Unknown]
